FAERS Safety Report 10775015 (Version 2)
Quarter: 2015Q3

REPORT INFORMATION
  Report Type: Spontaneous
  Country: DE (occurrence: DE)
  Receive Date: 20150209
  Receipt Date: 20150728
  Transmission Date: 20151125
  Serious: Yes (Other)
  Sender: FDA-Public Use
  Company Number: DE-JNJFOC-20150121780

PATIENT
  Sex: Female
  Weight: 60 kg

DRUGS (6)
  1. XARELTO [Suspect]
     Active Substance: RIVAROXABAN
     Indication: PAGET-SCHROETTER SYNDROME
     Route: 048
     Dates: start: 20140419, end: 20150127
  2. XARELTO [Suspect]
     Active Substance: RIVAROXABAN
     Indication: EMBOLISM VENOUS
     Route: 048
     Dates: start: 20140419, end: 20150127
  3. XARELTO [Suspect]
     Active Substance: RIVAROXABAN
     Indication: PAGET-SCHROETTER SYNDROME
     Route: 048
     Dates: start: 20140331, end: 20140418
  4. CLEXANE [Suspect]
     Active Substance: ENOXAPARIN SODIUM
     Indication: PRODUCT USED FOR UNKNOWN INDICATION
     Route: 058
     Dates: start: 20150127
  5. XARELTO [Suspect]
     Active Substance: RIVAROXABAN
     Indication: EMBOLISM VENOUS
     Route: 048
     Dates: start: 20140331, end: 20140418
  6. RESTEX [Concomitant]
     Active Substance: BENSERAZIDE
     Indication: RESTLESS LEGS SYNDROME
     Route: 065
     Dates: start: 20141218, end: 20150127

REACTIONS (2)
  - Exposure during pregnancy [Unknown]
  - Thrombosis [Unknown]
